FAERS Safety Report 5719789-4 (Version None)
Quarter: 2008Q2

REPORT INFORMATION
  Report Type: 
  Country: None (occurrence: None)
  Receive Date: 20080424
  Receipt Date: 20080408
  Transmission Date: 20081010
  Serious: Yes (Other)
  Sender: FDA-Public Use
  Company Number: 2008BI008577

PATIENT
  Age: 58 Year
  Sex: Male

DRUGS (13)
  1. TYSABRI [Suspect]
     Indication: MULTIPLE SCLEROSIS
     Dosage: 300 MG; QM; IV
     Route: 042
     Dates: start: 20070425
  2. CLARITIN [Concomitant]
  3. TYLENOL [Concomitant]
  4. ARICEPT [Concomitant]
  5. IBUPROFEN TABLETS [Concomitant]
  6. AMBIEN [Concomitant]
  7. BUPROPION HYDROCHLORIDE [Concomitant]
  8. PROVIGIL [Concomitant]
  9. NAMENDA [Concomitant]
  10. BACLOFEN [Concomitant]
  11. VIAGRA [Concomitant]
  12. ASPIRIN [Concomitant]
  13. ZOCOR [Concomitant]

REACTIONS (21)
  - ALANINE AMINOTRANSFERASE INCREASED [None]
  - ASPARTATE AMINOTRANSFERASE INCREASED [None]
  - BILIRUBIN CONJUGATED INCREASED [None]
  - BLOOD ALBUMIN DECREASED [None]
  - BLOOD ALKALINE PHOSPHATASE INCREASED [None]
  - BLOOD BILIRUBIN INCREASED [None]
  - BLOOD CHLORIDE DECREASED [None]
  - BLOOD GLUCOSE INCREASED [None]
  - BLOOD SODIUM DECREASED [None]
  - CD4 LYMPHOCYTES INCREASED [None]
  - ERECTILE DYSFUNCTION [None]
  - FAECES PALE [None]
  - HEPATIC ENZYME INCREASED [None]
  - HIGH DENSITY LIPOPROTEIN DECREASED [None]
  - INSOMNIA [None]
  - INTERNATIONAL NORMALISED RATIO INCREASED [None]
  - MONOCYTE COUNT INCREASED [None]
  - MUSCLE SPASTICITY [None]
  - PROTEIN TOTAL INCREASED [None]
  - RED BLOOD CELL COUNT DECREASED [None]
  - RED CELL DISTRIBUTION WIDTH INCREASED [None]
